FAERS Safety Report 23122693 (Version 3)
Quarter: 2024Q2

REPORT INFORMATION
  Report Type: Spontaneous
  Country: US (occurrence: US)
  Receive Date: 20231030
  Receipt Date: 20240408
  Transmission Date: 20240716
  Serious: No
  Sender: FDA-Public Use
  Company Number: US-UCBSA-2023015650

PATIENT
  Age: 19 Year
  Sex: Female

DRUGS (13)
  1. BRIVARACETAM [Suspect]
     Active Substance: BRIVARACETAM
     Indication: Juvenile myoclonic epilepsy
     Dosage: UNK
  2. LEVETIRACETAM [Suspect]
     Active Substance: LEVETIRACETAM
     Indication: Juvenile myoclonic epilepsy
     Dosage: UNK
  3. LACOSAMIDE [Suspect]
     Active Substance: LACOSAMIDE
     Indication: Juvenile myoclonic epilepsy
     Dosage: UNK
  4. LAMOTRIGINE [Suspect]
     Active Substance: LAMOTRIGINE
     Indication: Juvenile myoclonic epilepsy
     Dosage: UNK
  5. VALPROIC ACID [Suspect]
     Active Substance: VALPROIC ACID
     Indication: Juvenile myoclonic epilepsy
     Dosage: UNK
  6. VIGABATRIN [Suspect]
     Active Substance: VIGABATRIN
     Indication: Juvenile myoclonic epilepsy
     Dosage: UNK
  7. RUFINAMIDE [Suspect]
     Active Substance: RUFINAMIDE
     Indication: Juvenile myoclonic epilepsy
     Dosage: UNK
  8. ACETAZOLAMIDE [Suspect]
     Active Substance: ACETAZOLAMIDE
     Indication: Juvenile myoclonic epilepsy
     Dosage: UNK
  9. TOPIRAMATE [Suspect]
     Active Substance: TOPIRAMATE
     Indication: Juvenile myoclonic epilepsy
     Dosage: UNK
  10. ETHOSUXIMIDE [Suspect]
     Active Substance: ETHOSUXIMIDE
     Indication: Juvenile myoclonic epilepsy
     Dosage: UNK
  11. CLOBAZAM [Suspect]
     Active Substance: CLOBAZAM
     Indication: Juvenile myoclonic epilepsy
     Dosage: UNK
  12. PERAMPANEL [Suspect]
     Active Substance: PERAMPANEL
     Indication: Juvenile myoclonic epilepsy
     Dosage: UNK
  13. ZONISAMIDE [Suspect]
     Active Substance: ZONISAMIDE
     Indication: Juvenile myoclonic epilepsy
     Dosage: UNK

REACTIONS (1)
  - Multiple-drug resistance [Unknown]
